FAERS Safety Report 9099108 (Version 1)
Quarter: 2013Q1

REPORT INFORMATION
  Report Type: Spontaneous
  Country: IN (occurrence: IN)
  Receive Date: 20130214
  Receipt Date: 20130214
  Transmission Date: 20140127
  Serious: Yes (Other)
  Sender: FDA-Public Use
  Company Number: IN-009507513-1302IND004589

PATIENT
  Age: 56 Year
  Sex: Male

DRUGS (2)
  1. JANUMET [Suspect]
     Dosage: 50/500MG, 2/DAY
     Route: 048
  2. INSULIN [Concomitant]

REACTIONS (4)
  - Coronary artery bypass [Not Recovered/Not Resolved]
  - Pain in extremity [Not Recovered/Not Resolved]
  - Dyspepsia [Not Recovered/Not Resolved]
  - Drug dose omission [Not Recovered/Not Resolved]
